FAERS Safety Report 6077927-0 (Version None)
Quarter: 2009Q1

REPORT INFORMATION
  Report Type: 
  Country: None (occurrence: None)
  Receive Date: 20090213
  Receipt Date: 20090202
  Transmission Date: 20090719
  Serious: Yes (Life-Threatening)
  Sender: FDA-Public Use
  Company Number: FR-ROCHE-612161

PATIENT
  Sex: Female

DRUGS (13)
  1. FANSIDAR [Suspect]
     Indication: DRUG USE FOR UNKNOWN INDICATION
     Dosage: DOSAGE REGIMEN: 7 TABLETS IN TOTAL WITHIN 24 HOURS
     Route: 048
     Dates: start: 20081023, end: 20081024
  2. FANSIDAR [Suspect]
     Dosage: ONE TABLET/DAY
     Route: 048
     Dates: start: 20081028
  3. NOXAFIL [Suspect]
     Indication: DRUG USE FOR UNKNOWN INDICATION
     Route: 048
     Dates: start: 20081021, end: 20081026
  4. CLAMOXYL [Suspect]
     Indication: DRUG USE FOR UNKNOWN INDICATION
     Route: 048
     Dates: start: 20081021, end: 20081026
  5. NEORAL [Suspect]
     Indication: DRUG USE FOR UNKNOWN INDICATION
     Route: 048
     Dates: start: 20080929, end: 20081024
  6. FOSCAVIR [Suspect]
     Indication: DRUG USE FOR UNKNOWN INDICATION
     Route: 048
     Dates: start: 20081022, end: 20081024
  7. CORTANCYL [Concomitant]
  8. ALPRAZOLAM [Concomitant]
  9. LEDERFOLINE [Concomitant]
  10. STILNOX [Concomitant]
  11. CALCIDOSE [Concomitant]
  12. SOLU-MEDROL [Concomitant]
  13. RIVOTRIL [Concomitant]

REACTIONS (2)
  - BLINDNESS CORTICAL [None]
  - CONVULSION [None]
